FAERS Safety Report 5024328-X (Version None)
Quarter: 2006Q2

REPORT INFORMATION
  Report Type: 
  Country: None (occurrence: None)
  Receive Date: 20060613
  Receipt Date: 20060606
  Transmission Date: 20061013
  Serious: Yes (Other)
  Sender: FDA-Public Use
  Company Number: US-BRISTOL-MYERS SQUIBB COMPANY-13402664

PATIENT
  Age: 57 Year
  Sex: Female

DRUGS (1)
  1. NADOLOL [Suspect]

REACTIONS (2)
  - ASTHMA [None]
  - CONVULSION [None]
